FAERS Safety Report 6233503-8 (Version None)
Quarter: 2009Q2

REPORT INFORMATION
  Report Type: 
  Country: None (occurrence: None)
  Receive Date: 20090617
  Receipt Date: 20090612
  Transmission Date: 20091009
  Serious: Yes (Hospitalization)
  Sender: FDA-Public Use
  Company Number: US-ABBOTT-09P-163-0579542-00

PATIENT
  Sex: Male
  Weight: 63.56 kg

DRUGS (5)
  1. NIASPAN [Suspect]
     Indication: BLOOD CHOLESTEROL INCREASED
     Route: 048
     Dates: start: 20090301
  2. NIASPAN [Suspect]
     Route: 048
     Dates: start: 20090501
  3. CARVEDILOL [Concomitant]
     Indication: CARDIAC DISORDER
     Dates: start: 20090501
  4. LISINOPRIL [Concomitant]
     Indication: HYPERTENSION
  5. DILANTIN [Concomitant]
     Indication: CONVULSION

REACTIONS (1)
  - MYOCARDIAL INFARCTION [None]
